FAERS Safety Report 23910044 (Version 1)
Quarter: 2024Q2

REPORT INFORMATION
  Report Type: Spontaneous
  Country: FR (occurrence: FR)
  Receive Date: 20240528
  Receipt Date: 20240528
  Transmission Date: 20240716
  Serious: Yes (Other)
  Sender: FDA-Public Use
  Company Number: None

PATIENT
  Age: 6 Year
  Sex: Female
  Weight: 18 kg

DRUGS (1)
  1. ELEXACAFTOR\IVACAFTOR\TEZACAFTOR [Suspect]
     Active Substance: ELEXACAFTOR\IVACAFTOR\TEZACAFTOR
     Indication: Cystic fibrosis
     Dosage: (37.5 MG IVA/ 25 MG TEZA/ 50 MG ELEXA) 2 DOSAGE FORM PER DAY
     Route: 048
     Dates: start: 20240201, end: 2024

REACTIONS (6)
  - Initial insomnia [Recovered/Resolved]
  - Abnormal behaviour [Recovered/Resolved]
  - Anger [Recovered/Resolved]
  - Disturbance in attention [Recovered/Resolved]
  - Irritability [Recovered/Resolved]
  - Depressed mood [Recovered/Resolved]

NARRATIVE: CASE EVENT DATE: 20240207
